FAERS Safety Report 4604025-2 (Version None)
Quarter: 2005Q1

REPORT INFORMATION
  Report Type: 
  Country: None (occurrence: None)
  Receive Date: 20050308
  Receipt Date: 20050308
  Transmission Date: 20050727
  Serious: No
  Sender: FDA-Public Use
  Company Number: None

PATIENT
  Age: 41 Year
  Sex: Female
  Weight: 99.8 kg

DRUGS (2)
  1. GABAPENTIN [Suspect]
     Indication: BACK PAIN
     Dosage: 1200MG PO TID
     Route: 048
     Dates: start: 20050119
  2. GABAPENTIN [Suspect]
     Indication: BACK PAIN
     Dosage: 1200MG PO TID
     Route: 048
     Dates: start: 20050214

REACTIONS (2)
  - DRUG EFFECT DECREASED [None]
  - PHARMACEUTICAL PRODUCT COMPLAINT [None]
